FAERS Safety Report 8918464 (Version 1)
Quarter: 2012Q4

REPORT INFORMATION
  Report Type: 
  Country: US (occurrence: US)
  Receive Date: 20121120
  Receipt Date: 20121120
  Transmission Date: 20130627
  Serious: No
  Sender: FDA-Public Use
  Company Number: US-ASTRAZENECA-2012SE17894

PATIENT
  Age: 60 Year
  Sex: Female
  Weight: 113.4 kg

DRUGS (5)
  1. NEXIUM [Suspect]
     Route: 048
  2. PRILOSEC [Suspect]
     Route: 048
  3. LIPITOR [Concomitant]
     Indication: BLOOD CHOLESTEROL ABNORMAL
  4. THYROXINE [Concomitant]
     Indication: THYROID DISORDER
  5. EFFEXOR XR [Concomitant]
     Indication: DEPRESSION

REACTIONS (5)
  - Regurgitation [Unknown]
  - Drug ineffective [Unknown]
  - Oesophagitis [Unknown]
  - Wrong drug administered [Unknown]
  - Intentional drug misuse [Unknown]
